FAERS Safety Report 5826990-8 (Version None)
Quarter: 2008Q3

REPORT INFORMATION
  Report Type: 
  Country: None (occurrence: None)
  Receive Date: 20080725
  Receipt Date: 20080717
  Transmission Date: 20090109
  Serious: Yes (Hospitalization)
  Sender: FDA-Public Use
  Company Number: CAP08000231

PATIENT
  Sex: Female

DRUGS (3)
  1. ACTONEL [Suspect]
     Indication: OSTEOPOROSIS
     Dosage: 35 MG ONCE WEEKLY, ORAL
     Route: 048
     Dates: start: 20060101
  2. RABEPRAZOLE SODIUM [Concomitant]
  3. OXAZEPAM [Concomitant]

REACTIONS (3)
  - APPENDIX DISORDER [None]
  - COELIAC DISEASE [None]
  - GALLBLADDER DISORDER [None]
